FAERS Safety Report 7035046-0 (Version None)
Quarter: 2010Q4

REPORT INFORMATION
  Report Type: 
  Country: None (occurrence: None)
  Receive Date: 20101008
  Receipt Date: 20101005
  Transmission Date: 20110411
  Serious: Yes (Hospitalization)
  Sender: FDA-Public Use
  Company Number: CA-ROCHE-731692

PATIENT
  Sex: Male
  Weight: 95 kg

DRUGS (4)
  1. PEGASYS [Suspect]
     Indication: HEPATITIS C
     Route: 058
     Dates: start: 20100601
  2. COPEGUS [Suspect]
     Indication: HEPATITIS C
     Route: 048
     Dates: start: 20100601
  3. MIRTAZAPINE [Concomitant]
  4. CITALOPRAM HYDROBROMIDE [Concomitant]

REACTIONS (1)
  - THROMBOSIS [None]
